FAERS Safety Report 24333030 (Version 1)
Quarter: 2024Q3

REPORT INFORMATION
  Report Type: Spontaneous
  Country: CN (occurrence: CN)
  Receive Date: 20240918
  Receipt Date: 20240918
  Transmission Date: 20241017
  Serious: Yes (Other)
  Sender: SANOFI AVENTIS
  Company Number: CN-SA-2024SA263792

PATIENT
  Age: 31 Year
  Sex: Female

DRUGS (15)
  1. METFORMIN HYDROCHLORIDE [Suspect]
     Active Substance: METFORMIN HYDROCHLORIDE
     Indication: Gestational diabetes
     Dosage: UNK
     Route: 048
  2. INSULIN LISPRO [Suspect]
     Active Substance: INSULIN LISPRO
     Indication: Gestational diabetes
     Dosage: UNK
  3. INSULIN LISPRO [Suspect]
     Active Substance: INSULIN LISPRO
     Dosage: UNK
     Route: 058
  4. INSULIN GLULISINE [Suspect]
     Active Substance: INSULIN GLULISINE
     Indication: Gestational diabetes
     Dosage: UNK
  5. INSULIN GLULISINE [Suspect]
     Active Substance: INSULIN GLULISINE
     Dosage: UNK
     Route: 058
  6. INSULIN ASPART [Suspect]
     Active Substance: INSULIN ASPART
     Indication: Gestational diabetes
     Dosage: UNK
  7. INSULIN ASPART [Suspect]
     Active Substance: INSULIN ASPART
     Dosage: UNK (INJECTION)
     Route: 058
  8. HUMULIN N [Suspect]
     Active Substance: INSULIN HUMAN
     Indication: Gestational diabetes
     Dosage: UNK
  9. HUMULIN N [Suspect]
     Active Substance: INSULIN HUMAN
     Dosage: UNK
     Route: 058
  10. INSULIN DETEMIR [Suspect]
     Active Substance: INSULIN DETEMIR
     Indication: Gestational diabetes
     Dosage: UNK
  11. NOVOLIN R [Suspect]
     Active Substance: INSULIN HUMAN
     Indication: Gestational diabetes
     Dosage: UNK
  12. NOVOLIN R [Suspect]
     Active Substance: INSULIN HUMAN
     Dosage: UNK
     Route: 058
  13. HUMULIN R [Suspect]
     Active Substance: INSULIN HUMAN
     Indication: Gestational diabetes
     Dosage: UNK
  14. HUMULIN R [Suspect]
     Active Substance: INSULIN HUMAN
     Dosage: UNK
     Route: 058
  15. INSULIN NOS [Suspect]
     Active Substance: INSULIN NOS
     Dosage: UNK, INSULIN ANTIKETONE THERAPY
     Route: 042

REACTIONS (4)
  - Fulminant type 1 diabetes mellitus [Unknown]
  - Diabetic ketoacidosis [Unknown]
  - Drug hypersensitivity [Unknown]
  - Exposure during pregnancy [Unknown]
